FAERS Safety Report 4392342-3 (Version None)
Quarter: 2004Q3

REPORT INFORMATION
  Report Type: 
  Country: None (occurrence: None)
  Receive Date: 20040702
  Receipt Date: 20040303
  Transmission Date: 20050211
  Serious: Yes (Other)
  Sender: FDA-Public Use
  Company Number: 2004UW03982

PATIENT
  Age: 58 Year
  Sex: Male
  Weight: 82.5547 kg

DRUGS (4)
  1. CRESTOR [Suspect]
     Indication: HYPERCHOLESTEROLAEMIA
     Dosage: 10 MG QOD PO
     Route: 048
  2. CRESTOR [Suspect]
     Indication: HYPERCHOLESTEROLAEMIA
     Dosage: 10 MG QD PO
     Route: 048
     Dates: start: 20040228
  3. SOTOLOL [Concomitant]
  4. PLAVIX [Concomitant]

REACTIONS (3)
  - ASTHENIA [None]
  - FEELING ABNORMAL [None]
  - LISTLESS [None]
